FAERS Safety Report 10613278 (Version 4)
Quarter: 2015Q2

REPORT INFORMATION
  Report Type: Spontaneous
  Country: TW (occurrence: TW)
  Receive Date: 20141128
  Receipt Date: 20150605
  Transmission Date: 20150821
  Serious: Yes (Death, Hospitalization, Other)
  Sender: FDA-Public Use
  Company Number: TW-ALEXION PHARMACEUTICALS INC.-A201404426

PATIENT

DRUGS (5)
  1. SOLIRIS [Suspect]
     Active Substance: ECULIZUMAB
     Dosage: 600 MG, QW
     Route: 042
     Dates: start: 20140913
  2. SOLIRIS [Suspect]
     Active Substance: ECULIZUMAB
     Dosage: 900 MG, UNK
     Route: 042
     Dates: start: 20141105, end: 20141105
  3. SOLIRIS [Suspect]
     Active Substance: ECULIZUMAB
     Indication: PAROXYSMAL NOCTURNAL HAEMOGLOBINURIA
     Dosage: 600 MG, QW
     Route: 042
     Dates: start: 20131118
  4. SOLIRIS [Suspect]
     Active Substance: ECULIZUMAB
     Dosage: 900 MG, Q2W
     Route: 042
     Dates: end: 20140519
  5. SOLIRIS [Suspect]
     Active Substance: ECULIZUMAB
     Dosage: 900 MG, Q2W
     Route: 042
     Dates: end: 20141203

REACTIONS (23)
  - Platelet count decreased [Unknown]
  - Leukocytosis [Not Recovered/Not Resolved]
  - Tremor [Unknown]
  - Escherichia infection [Fatal]
  - Blood lactate dehydrogenase increased [Unknown]
  - Tachycardia [Not Recovered/Not Resolved]
  - Hypertension [Not Recovered/Not Resolved]
  - Respiratory failure [Fatal]
  - Dyspnoea [Unknown]
  - Anaemia [Not Recovered/Not Resolved]
  - Cellulitis [Recovered/Resolved]
  - Hyperglycaemia [Unknown]
  - Glossodynia [Unknown]
  - Acidosis [Unknown]
  - White blood cell count decreased [Unknown]
  - Sepsis [Fatal]
  - Pneumonia [Fatal]
  - Salmonellosis [Unknown]
  - Leukopenia [Unknown]
  - Thrombocytopenia [Not Recovered/Not Resolved]
  - Pyrexia [Not Recovered/Not Resolved]
  - Haemoglobin decreased [Unknown]
  - Oral candidiasis [Unknown]

NARRATIVE: CASE EVENT DATE: 2014
